FAERS Safety Report 7000319-4 (Version None)
Quarter: 2010Q3

REPORT INFORMATION
  Report Type: 
  Country: None (occurrence: None)
  Receive Date: 20100920
  Receipt Date: 20100331
  Transmission Date: 20110219
  Serious: Yes (Hospitalization)
  Sender: FDA-Public Use
  Company Number: US-ASTRAZENECA-2009SE21912

PATIENT
  Age: 18978 Day
  Sex: Male

DRUGS (6)
  1. SEROQUEL [Suspect]
     Indication: BIPOLAR DISORDER
     Dosage: 700 MG AT BEDTIME 300 MG EVERY MORNING
     Route: 048
     Dates: start: 20050614
  2. TRAZODONE HCL [Concomitant]
     Dates: start: 20050614
  3. DEPAKOTE ER [Concomitant]
     Indication: BIPOLAR DISORDER
     Dates: start: 20050614
  4. KLONOPIN [Concomitant]
     Indication: BIPOLAR DISORDER
     Dates: start: 20050614
  5. ACTOS [Concomitant]
     Route: 048
     Dates: start: 20050614
  6. NORVASC [Concomitant]
     Route: 048
     Dates: start: 20050614

REACTIONS (2)
  - DIABETIC KETOACIDOSIS [None]
  - TYPE 2 DIABETES MELLITUS [None]
